FAERS Safety Report 24430303 (Version 5)
Quarter: 2025Q2

REPORT INFORMATION
  Report Type: Spontaneous
  Country: US (occurrence: US)
  Receive Date: 20241013
  Receipt Date: 20250513
  Transmission Date: 20250717
  Serious: No
  Sender: SANOFI AVENTIS
  Company Number: US-SA-2024SA288184

PATIENT
  Age: 24 Year
  Sex: Male

DRUGS (2)
  1. DUPIXENT [Suspect]
     Active Substance: DUPILUMAB
     Indication: Dermatitis atopic
     Route: 058
     Dates: start: 20240924, end: 20240924
  2. DUPIXENT [Suspect]
     Active Substance: DUPILUMAB
     Dosage: 300 MG, QOW
     Route: 058
     Dates: start: 20241009

REACTIONS (14)
  - Periorbital irritation [Unknown]
  - Dermatitis [Unknown]
  - Dry skin [Unknown]
  - Dermatitis atopic [Recovering/Resolving]
  - Flushing [Recovered/Resolved]
  - Ocular hyperaemia [Recovering/Resolving]
  - Urticaria [Recovered/Resolved]
  - Erythema [Recovering/Resolving]
  - Condition aggravated [Recovering/Resolving]
  - Skin exfoliation [Not Recovered/Not Resolved]
  - Dry eye [Recovering/Resolving]
  - Eczema [Unknown]
  - Product dose omission issue [Unknown]
  - Drug ineffective [Unknown]

NARRATIVE: CASE EVENT DATE: 20240101
